FAERS Safety Report 6667674-6 (Version None)
Quarter: 2010Q2

REPORT INFORMATION
  Report Type: 
  Country: None (occurrence: None)
  Receive Date: 20100405
  Receipt Date: 20100329
  Transmission Date: 20101027
  Serious: No
  Sender: FDA-Public Use
  Company Number: B0644779A

PATIENT
  Sex: Female

DRUGS (1)
  1. NEOTIGASON [Suspect]
     Indication: DRUG USE FOR UNKNOWN INDICATION
     Route: 067

REACTIONS (1)
  - DRUG EXPOSURE DURING PREGNANCY [None]
